FAERS Safety Report 7491751-3 (Version None)
Quarter: 2011Q2

REPORT INFORMATION
  Report Type: 
  Country: None (occurrence: None)
  Receive Date: 20110519
  Receipt Date: 20110512
  Transmission Date: 20111010
  Serious: Yes (Death)
  Sender: FDA-Public Use
  Company Number: US-CELGENEUS-163-21880-11051663

PATIENT
  Sex: Female

DRUGS (12)
  1. REVLIMID [Suspect]
     Dosage: 10 MILLIGRAM
     Route: 048
     Dates: start: 20110423
  2. LOVAZA [Concomitant]
     Route: 065
  3. MULTI-VITAMINS [Concomitant]
     Route: 065
  4. VITAMIN C [Concomitant]
     Route: 065
  5. BISOPROL [Concomitant]
     Route: 065
  6. AROMASIN [Concomitant]
     Route: 065
  7. CALCIUM CARBONATE [Concomitant]
     Route: 065
  8. AMBIEN [Concomitant]
     Route: 065
  9. PLENDIL [Concomitant]
     Route: 065
  10. ZOCOR [Concomitant]
     Route: 065
  11. ZETIA [Concomitant]
     Route: 065
  12. HYDROCHLOROTHIAZIDE [Concomitant]
     Route: 065

REACTIONS (1)
  - DEATH [None]
